FAERS Safety Report 9995733 (Version 1)
Quarter: 2014Q1

REPORT INFORMATION
  Report Type: Spontaneous
  Country: US (occurrence: None)
  Receive Date: 20140221
  Receipt Date: 20140221
  Transmission Date: 20141002
  Serious: Yes (Other)
  Sender: FDA-Public Use
  Company Number: 1000052997

PATIENT
  Age: 68 Year
  Sex: Female

DRUGS (4)
  1. TUDORZA PRESSAIR (ACLIDINIUM BROMIDE) (400 MICROGRAM, POWDER) [Suspect]
     Indication: CHRONIC OBSTRUCTIVE PULMONARY DISEASE
     Dosage: 800 MCG (400 MCG, 2 IN 1 D), RESPIRATORY (INHALATION)
     Route: 055
     Dates: start: 20140107
  2. ADVAIR (SERETIDE) (SERETIDE) [Concomitant]
  3. HYDROXYUREA (HYDROXYCARBAMIDE (HYDROXYCARBAMIDE) [Concomitant]
  4. THYROID (THYROID) (THYROID) [Concomitant]

REACTIONS (3)
  - Fatigue [None]
  - Abdominal discomfort [None]
  - Diarrhoea [None]
